FAERS Safety Report 17373995 (Version 6)
Quarter: 2020Q2

REPORT INFORMATION
  Report Type: Report from Study
  Country: BR (occurrence: BR)
  Receive Date: 20200205
  Receipt Date: 20200507
  Transmission Date: 20200713
  Serious: Yes (Hospitalization)
  Sender: FDA-Public Use
  Company Number: BR-JNJFOC-20200150183

PATIENT
  Age: 65 Year
  Sex: Male

DRUGS (4)
  1. SIMPONI [Suspect]
     Active Substance: GOLIMUMAB
     Indication: RHEUMATOID ARTHRITIS
     Dosage: 0.5 ML
     Route: 058
     Dates: start: 20191017
  2. CARVEDILOL. [Concomitant]
     Active Substance: CARVEDILOL
  3. SIMVASTATIN. [Concomitant]
     Active Substance: SIMVASTATIN
  4. ENALAPRIL [Concomitant]
     Active Substance: ENALAPRIL

REACTIONS (7)
  - Rheumatoid arthritis [Unknown]
  - Intestinal ischaemia [Unknown]
  - Osteoporosis [Unknown]
  - Gastrointestinal infection [Not Recovered/Not Resolved]
  - Gastrointestinal disorder [Unknown]
  - Cardiac disorder [Unknown]
  - Osteoarthritis [Unknown]

NARRATIVE: CASE EVENT DATE: 20191226
